FAERS Safety Report 14226769 (Version 1)
Quarter: 2017Q4

REPORT INFORMATION
  Report Type: Spontaneous
  Country: US (occurrence: US)
  Receive Date: 20171127
  Receipt Date: 20171127
  Transmission Date: 20180321
  Serious: Yes (Other)
  Sender: FDA-Public Use
  Company Number: US-BAYER-2017-224335

PATIENT
  Age: 30 Year
  Sex: Female

DRUGS (2)
  1. MIRENA [Suspect]
     Active Substance: LEVONORGESTREL
     Dosage: 20 MCG/24HR, CONT
     Route: 015
     Dates: start: 20090612, end: 20111026
  2. MIRENA [Suspect]
     Active Substance: LEVONORGESTREL
     Dosage: 20 MCG/24HR, CONT
     Route: 015
     Dates: end: 20160408

REACTIONS (13)
  - Headache [None]
  - Tinnitus [None]
  - Dizziness [None]
  - Back pain [None]
  - Visual impairment [None]
  - Diplopia [None]
  - Photophobia [None]
  - Vomiting [None]
  - Vision blurred [None]
  - Intracranial pressure increased [None]
  - Nausea [None]
  - Papilloedema [None]
  - Eye pain [None]
